FAERS Safety Report 9341425 (Version 1)
Quarter: 2013Q2

REPORT INFORMATION
  Report Type: Spontaneous
  Country: AU (occurrence: AU)
  Receive Date: 20130611
  Receipt Date: 20130611
  Transmission Date: 20140414
  Serious: Yes (Death, Other)
  Sender: FDA-Public Use
  Company Number: AU-CELGENEUS-008-C4047-13051743

PATIENT
  Sex: 0

DRUGS (7)
  1. CC-4047 [Suspect]
     Indication: PLASMA CELL MYELOMA
     Dosage: 2.25 MILLIGRAM
     Route: 048
     Dates: start: 20130327
  2. CC-4047 [Suspect]
     Dosage: 1.5 MILLIGRAM
     Route: 048
     Dates: start: 20130424, end: 20130513
  3. DEXAMETHASONE [Concomitant]
     Indication: PLASMA CELL MYELOMA
     Dosage: 40 MILLIGRAM
     Route: 048
     Dates: start: 20130419, end: 20130518
  4. HYDROMORPHONE [Concomitant]
     Indication: PAIN
     Route: 058
     Dates: start: 20130503, end: 20130520
  5. ESOMEPRAZOLE [Concomitant]
     Indication: GASTROOESOPHAGEAL REFLUX DISEASE
     Dosage: 20 MILLIGRAM
     Route: 048
     Dates: start: 2010, end: 20130518
  6. PARACETAMOL [Concomitant]
     Indication: PAIN
     Dosage: 2 TABLET
     Route: 065
     Dates: start: 20130423, end: 20130518
  7. AUGMENTIN [Concomitant]
     Indication: LOWER RESPIRATORY TRACT INFECTION
     Route: 048
     Dates: start: 20130420, end: 20130423

REACTIONS (2)
  - Plasma cell myeloma [Fatal]
  - Pancytopenia [Not Recovered/Not Resolved]
